FAERS Safety Report 7792115-5 (Version None)
Quarter: 2011Q4

REPORT INFORMATION
  Report Type: 
  Country: None (occurrence: None)
  Receive Date: 20111003
  Receipt Date: 20110928
  Transmission Date: 20120403
  Serious: Yes (Death, Hospitalization)
  Sender: FDA-Public Use
  Company Number: AU-AMGEN-QUU429999

PATIENT
  Age: 70 Year

DRUGS (24)
  1. MINOXIDIL [Concomitant]
     Dosage: 10 MG, BID
  2. MAGNESIUM ASPARTATE [Concomitant]
     Dosage: 1000 MG, QD
  3. METOCLOPRAMIDE [Concomitant]
     Dosage: 10 MG, TID
  4. ATENOLOL [Concomitant]
     Dosage: 50 MG, BID
  5. SODIUM BICARBONATE [Concomitant]
     Dosage: 840 MG, BID
  6. CHOLECALCIFEROL [Concomitant]
     Dosage: 25 MUG, QD
  7. DOXEPIN [Concomitant]
     Dosage: 25 MG, QD
  8. ALLOPURINOL [Concomitant]
     Dosage: 100 MG, QD
  9. COLOXYL WITH SENNA [Concomitant]
     Dosage: UNK UNK, QD
  10. SERTRALINE HYDROCHLORIDE [Concomitant]
     Dosage: 50 MG, QD
  11. FOLIC ACID [Concomitant]
     Dosage: 0.5 MG, QD
  12. ROPINIROLE [Concomitant]
     Dosage: 0.5 MG, QD
  13. SERETIDE [Concomitant]
     Dosage: UNK UNK, BID
  14. HALOPERIDOL [Concomitant]
     Dosage: 0.5 MG, UNK
  15. ACETAMINOPHEN [Concomitant]
     Dosage: 1000 MG, QID
  16. FENTANYL [Concomitant]
     Dosage: 25 MUG, UNK
  17. ESTRADIOL [Concomitant]
     Dosage: 1 MG/G, UNK
  18. NPLATE [Suspect]
     Indication: IDIOPATHIC THROMBOCYTOPENIC PURPURA
  19. FUROSEMIDE [Concomitant]
     Dosage: 40 MG, PRN
  20. OXYCODONE HCL [Concomitant]
     Dosage: UNK UNK, PRN
  21. ERYTHROPOETIN [Concomitant]
     Dosage: 8000 UNIT, UNK
  22. PREDNISOLONE [Concomitant]
     Dosage: 5 MG, UNK
  23. RABEPRAZOLE SODIUM [Concomitant]
     Dosage: 40 MG, QD
  24. CALCIUM CARBONATE [Concomitant]
     Dosage: 600 MG, QD

REACTIONS (5)
  - RENAL FAILURE [None]
  - NAUSEA [None]
  - ABDOMINAL PAIN [None]
  - HAEMOLYSIS [None]
  - DECREASED APPETITE [None]
